FAERS Safety Report 16331809 (Version 1)
Quarter: 2019Q2

REPORT INFORMATION
  Report Type: Spontaneous
  Country: PL (occurrence: PL)
  Receive Date: 20190520
  Receipt Date: 20190520
  Transmission Date: 20190711
  Serious: Yes (Other)
  Sender: FDA-Public Use
  Company Number: PL-ALVOGEN-2018-ALVOGEN-095050

PATIENT
  Age: 70 Year
  Sex: Female

DRUGS (17)
  1. AMOXICILLIN. [Concomitant]
     Active Substance: AMOXICILLIN
     Indication: PNEUMONIA
     Route: 065
  2. CARBIDOPA/LEVODOPA [Interacting]
     Active Substance: CARBIDOPA\LEVODOPA
     Indication: PARKINSON^S DISEASE
     Dosage: PROLONGED RELEASE LEVODOPA/CARBIDOPA 200/50 MG 1X/DAY AT 10:00PM ()
     Route: 065
  3. BIPERIDEN [Interacting]
     Active Substance: BIPERIDEN
     Indication: PARKINSON^S DISEASE
     Route: 065
  4. AMANTADINE. [Interacting]
     Active Substance: AMANTADINE HYDROCHLORIDE
     Indication: PARKINSON^S DISEASE
     Dosage: MORNING AND MIDDAY
     Route: 065
  5. AMITRIPTYLINE HYDROCHLORIDE. [Interacting]
     Active Substance: AMITRIPTYLINE HYDROCHLORIDE
     Indication: SLEEP DISORDER
     Route: 065
  6. ROPINIROLE HYDROCHLORIDE. [Interacting]
     Active Substance: ROPINIROLE HYDROCHLORIDE
     Indication: PARKINSON^S DISEASE
     Dosage: DOSE REDUCED
     Route: 065
  7. OXYBUTYNIN HYDROCHLORIDE [Interacting]
     Active Substance: OXYBUTYNIN CHLORIDE
     Indication: URINARY INCONTINENCE
     Route: 065
  8. RASAGILINE. [Interacting]
     Active Substance: RASAGILINE
     Indication: PARKINSON^S DISEASE
     Dosage: 1 MG,QD, IN MORNING
     Route: 065
  9. BIPERIDEN [Interacting]
     Active Substance: BIPERIDEN
     Indication: PARKINSON^S DISEASE
     Route: 065
  10. AMOXICILLIN. [Concomitant]
     Active Substance: AMOXICILLIN
     Indication: PNEUMONIA
     Route: 065
  11. ROPINIROLE HYDROCHLORIDE. [Interacting]
     Active Substance: ROPINIROLE HYDROCHLORIDE
     Indication: PARKINSON^S DISEASE
     Dosage: 8 MG,QD, IN MORNING
     Route: 065
  12. RIVASTIGMINE. [Suspect]
     Active Substance: RIVASTIGMINE
     Indication: PRODUCT USED FOR UNKNOWN INDICATION
  13. AMITRIPTYLINE HYDROCHLORIDE. [Interacting]
     Active Substance: AMITRIPTYLINE HYDROCHLORIDE
     Indication: DEPRESSION
     Route: 065
  14. OXYBUTYNIN HYDROCHLORIDE [Interacting]
     Active Substance: OXYBUTYNIN CHLORIDE
     Indication: URINARY INCONTINENCE
     Dosage: 5 MG,TID
     Route: 065
  15. HYDROXYZINE [Interacting]
     Active Substance: HYDROXYZINE HYDROCHLORIDE
     Indication: ANXIETY DISORDER
     Dosage: AS NEEDED
     Route: 065
  16. CARBIDOPA/LEVODOPA [Interacting]
     Active Substance: CARBIDOPA\LEVODOPA
     Indication: PARKINSON^S DISEASE
     Dosage: 100/25 MG 4 TIMES A DAY AT 7.00 AM, 11.00 AM, 3.00 PM AND 7.00 PM.
     Route: 065
  17. CLOZAPINE. [Interacting]
     Active Substance: CLOZAPINE
     Indication: HALLUCINATIONS, MIXED
     Route: 065

REACTIONS (12)
  - Parkinson^s disease [Unknown]
  - White blood cell count increased [Unknown]
  - Anxiety [Unknown]
  - Psychotic symptom [Unknown]
  - Neutrophil count increased [Unknown]
  - C-reactive protein increased [Unknown]
  - Labelled drug-drug interaction medication error [Unknown]
  - Cerebral atrophy [Unknown]
  - Pneumonia [Unknown]
  - Hallucination [Recovered/Resolved]
  - Hallucinations, mixed [Recovered/Resolved]
  - Mental impairment [Unknown]
